FAERS Safety Report 10883227 (Version 1)
Quarter: 2015Q1

REPORT INFORMATION
  Report Type: Spontaneous
  Country: US (occurrence: None)
  Receive Date: 20150226
  Receipt Date: 20150226
  Transmission Date: 20150721
  Serious: Yes (Disabling)
  Sender: FDA-Public Use
  Company Number: None

PATIENT
  Age: 69 Year
  Sex: Male
  Weight: 72.58 kg

DRUGS (8)
  1. PROZAC [Concomitant]
     Active Substance: FLUOXETINE HYDROCHLORIDE
  2. VITAMIN MINERAL SUPLEMENT [Concomitant]
  3. FISH OIL [Concomitant]
     Active Substance: FISH OIL
  4. VITAMIN C [Concomitant]
     Active Substance: ASCORBIC ACID
  5. 81 MG ASPIRIN [Concomitant]
  6. METFORMIN [Suspect]
     Active Substance: METFORMIN HYDROCHLORIDE
     Indication: BLOOD GLUCOSE INCREASED
     Dosage: 2 PILLS
     Route: 048
     Dates: start: 20130420, end: 20150201
  7. VITAMIN D [Concomitant]
     Active Substance: CHOLECALCIFEROL
  8. METFORMIN [Suspect]
     Active Substance: METFORMIN HYDROCHLORIDE
     Indication: GLYCOSYLATED HAEMOGLOBIN INCREASED
     Dosage: 2 PILLS
     Route: 048
     Dates: start: 20130420, end: 20150201

REACTIONS (3)
  - Back pain [None]
  - Musculoskeletal stiffness [None]
  - Pain [None]

NARRATIVE: CASE EVENT DATE: 20150102
